FAERS Safety Report 12168250 (Version 1)
Quarter: 2016Q1

REPORT INFORMATION
  Report Type: Report from Study
  Country: MX (occurrence: MX)
  Receive Date: 20160310
  Receipt Date: 20160310
  Transmission Date: 20160526
  Serious: Yes (Other)
  Sender: FDA-Public Use
  Company Number: MX-AMGEN-MEXSL2016028854

PATIENT
  Age: 75 Year
  Sex: Female

DRUGS (1)
  1. PROLIA [Suspect]
     Active Substance: DENOSUMAB
     Indication: OSTEOPOROSIS
     Dosage: UNK
     Route: 065
     Dates: start: 20130819, end: 20150310

REACTIONS (4)
  - Osteonecrosis of jaw [Unknown]
  - Tooth extraction [Unknown]
  - Tooth loss [Unknown]
  - Mucosal necrosis [Recovered/Resolved with Sequelae]

NARRATIVE: CASE EVENT DATE: 201503
